FAERS Safety Report 5098423-3 (Version None)
Quarter: 2006Q3

REPORT INFORMATION
  Report Type: 
  Country: None (occurrence: None)
  Receive Date: 20060907
  Receipt Date: 20060822
  Transmission Date: 20061208
  Serious: Yes (Other)
  Sender: FDA-Public Use
  Company Number: PHEH2006US10763

PATIENT
  Age: 49 Year
  Sex: Female

DRUGS (6)
  1. LAMISIL [Suspect]
     Indication: NAIL TINEA
     Dosage: 250 MG, QD
     Route: 048
     Dates: start: 20060807, end: 20060819
  2. BENADRYL ^PFIZER WARNER-LAMBERT^ [Concomitant]
     Dates: start: 20060817
  3. ADVIL [Concomitant]
     Dates: start: 20060818
  4. DARVOCET [Concomitant]
     Indication: PAIN
     Dosage: UNK, PRN
     Route: 048
  5. CELEBREX [Concomitant]
     Dosage: UNK, ONCE/SINGLE
     Dates: start: 20060826
  6. CELEBREX [Concomitant]
     Dosage: EVERY OTHER TO THIRD DAY
     Dates: end: 20060806

REACTIONS (21)
  - AGEUSIA [None]
  - BLOOD PRESSURE DECREASED [None]
  - DIARRHOEA [None]
  - DIZZINESS [None]
  - DRUG INEFFECTIVE [None]
  - DYSARTHRIA [None]
  - DYSGEUSIA [None]
  - DYSGRAPHIA [None]
  - FALL [None]
  - FATIGUE [None]
  - FEELING ABNORMAL [None]
  - FEELING DRUNK [None]
  - GAIT DISTURBANCE [None]
  - MEMORY IMPAIRMENT [None]
  - NAUSEA [None]
  - PAIN IN EXTREMITY [None]
  - PERIORBITAL HAEMATOMA [None]
  - PRURITUS [None]
  - SLEEP DISORDER [None]
  - SOMNOLENCE [None]
  - SPEECH DISORDER [None]
